FAERS Safety Report 11121082 (Version 1)
Quarter: 2015Q2

REPORT INFORMATION
  Report Type: Spontaneous
  Country: US (occurrence: None)
  Receive Date: 20150515
  Receipt Date: 20150515
  Transmission Date: 20150821
  Serious: Yes (Hospitalization, Other)
  Sender: FDA-Public Use
  Company Number: US-ZYDUS-008060

PATIENT
  Age: 2 Year
  Sex: Female

DRUGS (2)
  1. DONEPEZIL(DONEPEZIL) [Suspect]
     Active Substance: DONEPEZIL
  2. MEMANTINE (MEMANTINE) [Suspect]
     Active Substance: MEMANTINE

REACTIONS (1)
  - Encephalopathy [None]
